FAERS Safety Report 18903135 (Version 3)
Quarter: 2021Q2

REPORT INFORMATION
  Report Type: Spontaneous
  Country: CO (occurrence: CO)
  Receive Date: 20210216
  Receipt Date: 20210402
  Transmission Date: 20210717
  Serious: No
  Sender: FDA-Public Use
  Company Number: CO-AMGEN-COLSP2021021999

PATIENT
  Age: 70 Year
  Sex: Male

DRUGS (2)
  1. NEULASTA [Suspect]
     Active Substance: PEGFILGRASTIM
     Dosage: UNK UNK, QMO (ONCE A MONTH)
     Route: 065
  2. NEULASTA [Suspect]
     Active Substance: PEGFILGRASTIM
     Indication: PROPHYLAXIS
     Dosage: UNK UNK, QMO (ONCE A MONTH)
     Route: 065

REACTIONS (1)
  - Device physical property issue [Unknown]

NARRATIVE: CASE EVENT DATE: 20210205
